FAERS Safety Report 8780224 (Version 1)
Quarter: 2012Q4

REPORT INFORMATION
  Report Type: Spontaneous
  Country: US (occurrence: None)
  Receive Date: 20120904
  Receipt Date: 20120904
  Transmission Date: 20130627
  Serious: Yes (Hospitalization)
  Sender: FDA-Public Use
  Company Number: None

PATIENT
  Age: 61 Year
  Sex: Male
  Weight: 133 kg

DRUGS (2)
  1. WARFARIN [Suspect]
     Dosage: MG
     Route: 048
     Dates: start: 20120608
  2. ASPIRIN [Suspect]
     Route: 048
     Dates: start: 20100510

REACTIONS (1)
  - Renal haematoma [None]
